FAERS Safety Report 11957734 (Version 1)
Quarter: 2016Q1

REPORT INFORMATION
  Report Type: Spontaneous
  Country: US (occurrence: US)
  Receive Date: 20160126
  Receipt Date: 20160126
  Transmission Date: 20160526
  Serious: No
  Sender: FDA-Public Use
  Company Number: US-LUNDBECK-DKLU2007983

PATIENT
  Age: 44 Year
  Sex: Female

DRUGS (4)
  1. NORTHERA [Suspect]
     Active Substance: DROXIDOPA
     Indication: MYASTHENIA GRAVIS
     Route: 065
  2. NORTHERA [Suspect]
     Active Substance: DROXIDOPA
     Indication: AUTONOMIC NEUROPATHY
     Route: 065
     Dates: start: 201511, end: 201512
  3. NORTHERA [Suspect]
     Active Substance: DROXIDOPA
     Indication: ORTHOSTATIC HYPOTENSION
     Route: 065
     Dates: start: 201512
  4. NORTHERA [Suspect]
     Active Substance: DROXIDOPA
     Indication: NEUROPATHY PERIPHERAL

REACTIONS (3)
  - Gait disturbance [Not Recovered/Not Resolved]
  - Pyrexia [Not Recovered/Not Resolved]
  - Diarrhoea [Not Recovered/Not Resolved]

NARRATIVE: CASE EVENT DATE: 201512
